FAERS Safety Report 6715642-8 (Version None)
Quarter: 2010Q2

REPORT INFORMATION
  Report Type: 
  Country: None (occurrence: None)
  Receive Date: 20100507
  Receipt Date: 20100430
  Transmission Date: 20101027
  Serious: No
  Sender: FDA-Public Use
  Company Number: US-B.I. PHARMACEUTICALS,INC./RIDGEFIELD-2010-BP-05070BP

PATIENT
  Age: 50 Year
  Sex: Male

DRUGS (3)
  1. ZANTAC 150 [Suspect]
     Indication: ACIDOSIS
     Dosage: 150 MG
     Route: 048
     Dates: start: 20090101, end: 20100428
  2. ZANTAC 150 [Suspect]
     Indication: DYSPEPSIA
  3. ASPIRIN [Concomitant]
     Indication: PROPHYLAXIS
     Dosage: 81 MG
     Route: 048

REACTIONS (1)
  - DRUG INEFFECTIVE [None]
